FAERS Safety Report 5000888-X (Version None)
Quarter: 2006Q2

REPORT INFORMATION
  Report Type: 
  Country: None (occurrence: None)
  Receive Date: 20060512
  Receipt Date: 20050818
  Transmission Date: 20061013
  Serious: No
  Sender: FDA-Public Use
  Company Number: US-GLAXOSMITHKLINE-A0571050A

PATIENT
  Sex: Female

DRUGS (2)
  1. RELAFEN [Suspect]
     Dosage: 750MG SEE DOSAGE TEXT
     Route: 048
  2. MULTIPLE MEDICATIONS [Concomitant]

REACTIONS (4)
  - BURNING SENSATION [None]
  - COMPLEX REGIONAL PAIN SYNDROME [None]
  - DIFFICULTY IN WALKING [None]
  - HYPOAESTHESIA [None]
